FAERS Safety Report 4461906-0 (Version None)
Quarter: 2004Q3

REPORT INFORMATION
  Report Type: 
  Country: None (occurrence: None)
  Receive Date: 20040929
  Receipt Date: 20031117
  Transmission Date: 20050211
  Serious: No
  Sender: FDA-Public Use
  Company Number: US-GLAXOSMITHKLINE-A0439990A

PATIENT
  Age: 53 Year
  Sex: Female

DRUGS (5)
  1. SEREVENT [Suspect]
     Indication: ASTHMA
     Dosage: 1PUFF TWICE PER DAY
     Route: 055
  2. RONDEC [Concomitant]
  3. PROTONIX [Concomitant]
  4. ALBUTEROL [Concomitant]
  5. MULTIVITAMIN [Concomitant]

REACTIONS (1)
  - DYSPNOEA EXACERBATED [None]
